FAERS Safety Report 9854232 (Version 2)
Quarter: 2014Q1

REPORT INFORMATION
  Report Type: Spontaneous
  Country: US (occurrence: US)
  Receive Date: 20140130
  Receipt Date: 20140130
  Transmission Date: 20141002
  Serious: Yes (Other)
  Sender: FDA-Public Use
  Company Number: US-ROCHE-GNE256757

PATIENT
  Age: 46 Year
  Sex: Female
  Weight: 80.09 kg

DRUGS (25)
  1. ALBUTEROL [Concomitant]
     Indication: PRODUCT USED FOR UNKNOWN INDICATION
  2. PROAIR (UNITED STATES) [Concomitant]
     Indication: ASTHMA
     Dosage: 2 PUFF, BID, DOSE 2 PUFF, DAILY DOSE 4 PUFF
     Route: 065
     Dates: start: 20050721
  3. ALVESCO [Concomitant]
     Indication: ASTHMA
     Dosage: UNK
     Route: 065
     Dates: start: 20080923
  4. ALVESCO [Concomitant]
     Dosage: 160 MCG, BID
     Route: 065
     Dates: start: 2009
  5. XOPENEX HFA [Concomitant]
     Indication: PRODUCT USED FOR UNKNOWN INDICATION
     Dosage: 1.25 MG, BID
     Route: 065
     Dates: start: 2008
  6. FLUTICASONE [Concomitant]
     Indication: HYPERSENSITIVITY
     Dosage: UNK
     Route: 065
     Dates: start: 2004
  7. XOLAIR [Suspect]
     Indication: ASTHMA
     Dosage: 150 MG, Q2W
     Route: 030
     Dates: start: 20060811, end: 20080214
  8. ALLEGRA [Concomitant]
     Indication: RHINITIS ALLERGIC
     Dosage: 180 MG, QD
     Route: 048
     Dates: start: 2004
  9. ASTELIN [Concomitant]
     Indication: RHINITIS ALLERGIC
     Dosage: 2 UNK, BID
     Route: 045
     Dates: start: 2004
  10. CLARITHROMYCIN [Concomitant]
     Indication: HYPERSENSITIVITY
     Dosage: 500 MG, QD
     Route: 048
     Dates: start: 2006
  11. CLARITHROMYCIN [Concomitant]
     Indication: ASTHMA
  12. FLONASE [Concomitant]
     Indication: RHINITIS ALLERGIC
     Dosage: 2 UNK, QAM
     Route: 045
     Dates: start: 20050721
  13. FORADIL [Concomitant]
     Indication: ASTHMA
     Dosage: 1 PUFF, Q12H, DOSE1 PUFF, DAILY DOSE 2 PUFF
     Route: 065
     Dates: start: 2006
  14. QVAR [Concomitant]
     Indication: ASTHMA
     Dosage: 5 PUFF, BID, DOSE 5 PUFF, DAILY DOSE 10 PUFF, TOTAL DOSE 3910 PUFF
     Route: 065
     Dates: start: 20070830, end: 20080923
  15. PREDNISONE [Concomitant]
     Indication: PRODUCT USED FOR UNKNOWN INDICATION
     Dosage: 40 MG, UNK
     Route: 048
     Dates: start: 20080213, end: 20080220
  16. PROAIR (UNITED STATES) [Concomitant]
     Indication: ASTHMA
     Dosage: 2 PUFF, PRN, DOSE 2 PUFF
     Route: 065
     Dates: start: 20050721
  17. SPIRIVA [Concomitant]
     Indication: ASTHMA
     Dosage: 18 MCG, QD
     Route: 065
     Dates: start: 20050901
  18. UNIPHYL [Concomitant]
     Indication: ASTHMA
     Dosage: 400 MG, QPM
     Route: 048
     Dates: start: 20060328
  19. VOSPIRE ER [Concomitant]
     Indication: PRODUCT USED FOR UNKNOWN INDICATION
     Dosage: 4 MG, TID
     Route: 048
     Dates: start: 20051101
  20. ZYFLO CR [Concomitant]
     Indication: ASTHMA
     Dosage: 600 MG, BID
     Route: 048
     Dates: start: 2009
  21. ZYFLO CR [Concomitant]
     Indication: HYPERSENSITIVITY
  22. ZYRTEC [Concomitant]
     Indication: RHINITIS ALLERGIC
     Dosage: 10 MG, QD
     Route: 048
     Dates: start: 20060821
  23. IMMUNOTHERAPY (AEROALLERGENS + DUST MITE) [Concomitant]
     Indication: PRODUCT USED FOR UNKNOWN INDICATION
     Dosage: UNK
     Route: 065
     Dates: start: 200509
  24. THEOPHYLLINE [Concomitant]
     Indication: ASTHMA
     Dosage: 2 TABLET, QD, DOSE 2 TABLET, DAILY DOSE 2 TABLET
     Route: 048
     Dates: start: 2005
  25. ADVAIR [Concomitant]
     Indication: PRODUCT USED FOR UNKNOWN INDICATION

REACTIONS (4)
  - Anaphylactic reaction [Recovered/Resolved]
  - Rash [Unknown]
  - Urticaria [Unknown]
  - Chest discomfort [Unknown]
